FAERS Safety Report 21398454 (Version 1)
Quarter: 2022Q3

REPORT INFORMATION
  Report Type: Spontaneous
  Country: AU (occurrence: None)
  Receive Date: 20220930
  Receipt Date: 20220930
  Transmission Date: 20221026
  Serious: Yes (Hospitalization)
  Sender: FDA-Public Use
  Company Number: 2022A333568

PATIENT
  Age: 55 Year
  Sex: Male
  Weight: 125 kg

DRUGS (12)
  1. ISOSORBIDE MONONITRATE [Interacting]
     Active Substance: ISOSORBIDE MONONITRATE
     Dosage: 840MG
     Route: 048
  2. OMEPRAZOLE [Interacting]
     Active Substance: OMEPRAZOLE
     Dosage: 560 MG
     Route: 048
  3. RAMIPRIL [Interacting]
     Active Substance: RAMIPRIL
     Dosage: 70 MG
     Route: 048
  4. ASPIRIN [Interacting]
     Active Substance: ASPIRIN
     Dosage: 700 MG
     Route: 048
  5. BISOPROLOL FUMARATE [Interacting]
     Active Substance: BISOPROLOL FUMARATE
     Dosage: 35 MG
     Route: 048
  6. FENOFIBRATE [Interacting]
     Active Substance: FENOFIBRATE
     Dosage: 1015 MG
     Route: 048
  7. FUROSEMIDE [Interacting]
     Active Substance: FUROSEMIDE
     Dosage: 840 MG
     Route: 048
  8. NICORANDIL [Interacting]
     Active Substance: NICORANDIL
     Dosage: 70 MG
     Route: 048
  9. POTASSIUM CHLORIDE [Interacting]
     Active Substance: POTASSIUM CHLORIDE
     Dosage: 600 MG
     Route: 048
  10. SERTRALINE HYDROCHLORIDE [Interacting]
     Active Substance: SERTRALINE HYDROCHLORIDE
     Dosage: 700 MG
     Route: 048
  11. SIMVASTATIN [Interacting]
     Active Substance: SIMVASTATIN
     Dosage: 280 MG
     Route: 048
  12. TEMAZEPAM [Interacting]
     Active Substance: TEMAZEPAM
     Dosage: 140 MG
     Route: 048

REACTIONS (4)
  - Drug interaction [Unknown]
  - Gastrointestinal disorder [Unknown]
  - Overdose [Unknown]
  - Toxicity to various agents [Unknown]
